FAERS Safety Report 7527525 (Version 6)
Quarter: 2012Q4

REPORT INFORMATION
  Report Type: 
  Country: CA (occurrence: CA)
  Receive Date: 20100804
  Receipt Date: 20121107
  Transmission Date: 20130627
  Serious: Yes (Other)
  Sender: FDA-Public Use
  Company Number: PHHY2009CA26093

PATIENT
  Sex: Female

DRUGS (4)
  1. SANDOSTATIN LAR [Suspect]
     Indication: ACROMEGALY
     Dosage: 20 mg, QMO
     Route: 030
  2. SANDOSTATIN LAR [Suspect]
     Dosage: 30 mg, every 4 weeks
     Route: 030
  3. SANDOSTATIN LAR [Suspect]
     Dosage: 20 mg, Every 4 weeks
     Route: 030
     Dates: end: 20070412
  4. SANDOSTATIN LAR [Suspect]
     Dosage: 10 mg, QMO
     Route: 030
     Dates: start: 20031217

REACTIONS (17)
  - Thermal burn [Unknown]
  - Blood growth hormone increased [Unknown]
  - Blood pressure increased [Unknown]
  - Respiratory disorder [Unknown]
  - Photopsia [Recovered/Resolved]
  - Depression [Unknown]
  - Influenza like illness [Unknown]
  - Pain [Recovering/Resolving]
  - Malaise [Unknown]
  - Immunoglobulins increased [Unknown]
  - Myalgia [Unknown]
  - Nausea [Unknown]
  - Abdominal distension [Unknown]
  - Diarrhoea [Unknown]
  - Heart rate decreased [Unknown]
  - Dizziness [Unknown]
  - Asthenia [Unknown]
